FAERS Safety Report 6911293-0 (Version None)
Quarter: 2010Q3

REPORT INFORMATION
  Report Type: 
  Country: None (occurrence: None)
  Receive Date: 20100806
  Receipt Date: 20100727
  Transmission Date: 20110219
  Serious: Yes (Other)
  Sender: FDA-Public Use
  Company Number: US-PFIZER INC-2005162350

PATIENT
  Sex: Male
  Weight: 72 kg

DRUGS (1)
  1. NEURONTIN [Suspect]
     Dosage: 3200 MG, UNK
     Dates: start: 20020918

REACTIONS (5)
  - CELLULITIS [None]
  - DEPRESSION [None]
  - DRUG INEFFECTIVE [None]
  - INTENTIONAL SELF-INJURY [None]
  - SUICIDE ATTEMPT [None]
